FAERS Safety Report 6020843-0 (Version None)
Quarter: 2008Q4

REPORT INFORMATION
  Report Type: 
  Country: None (occurrence: None)
  Receive Date: 20081229
  Receipt Date: 20081218
  Transmission Date: 20090506
  Serious: Yes (Death)
  Sender: FDA-Public Use
  Company Number: US-JNJFOC-20081206155

PATIENT
  Age: 40 Year
  Sex: Female

DRUGS (7)
  1. RISPERIDONE [Suspect]
     Indication: SUICIDE ATTEMPT
     Route: 065
  2. TRAMADOL [Suspect]
     Indication: SUICIDE ATTEMPT
     Route: 065
  3. HYDROCODONE [Suspect]
     Indication: SUICIDE ATTEMPT
     Route: 065
  4. CARISOPRODOL [Suspect]
     Indication: SUICIDE ATTEMPT
     Route: 065
  5. VENLAFAXINE [Suspect]
     Indication: SUICIDE ATTEMPT
     Route: 065
  6. BENZODIAZEPINE [Suspect]
     Indication: SUICIDE ATTEMPT
     Route: 065
  7. METHADON HCL TAB [Suspect]
     Indication: SUICIDE ATTEMPT
     Route: 065

REACTIONS (1)
  - DRUG TOXICITY [None]
